FAERS Safety Report 24638419 (Version 1)
Quarter: 2024Q4

REPORT INFORMATION
  Report Type: Spontaneous
  Country: US (occurrence: None)
  Receive Date: 20241119
  Receipt Date: 20241119
  Transmission Date: 20250114
  Serious: Yes (Hospitalization)
  Sender: Public
  Company Number: None

PATIENT
  Age: 68 Year
  Sex: Male

DRUGS (3)
  1. SKYRIZI [Suspect]
     Active Substance: RISANKIZUMAB-RZAA
     Indication: Psoriasis
     Dosage: 150 MG/ML SUBCUTANEOUS
     Route: 058
     Dates: start: 202407
  2. Losartan Potassium (bulk) [Concomitant]
  3. CLOBETASOL PROPIONATE [Concomitant]
     Active Substance: CLOBETASOL PROPIONATE

REACTIONS (3)
  - Pneumonitis [None]
  - Rash [None]
  - Skin disorder [None]

NARRATIVE: CASE EVENT DATE: 20240701
